FAERS Safety Report 8198581-8 (Version None)
Quarter: 2012Q1

REPORT INFORMATION
  Report Type: 
  Country: None (occurrence: None)
  Receive Date: 20120309
  Receipt Date: 20111229
  Transmission Date: 20120608
  Serious: No
  Sender: FDA-Public Use
  Company Number: US-AMGEN-USASP2011069294

PATIENT
  Sex: Female

DRUGS (6)
  1. LEVOTHYROXINE SODIUM [Concomitant]
     Dosage: 1 MG, UNK
  2. ASPIRIN [Concomitant]
     Dosage: 1 MG, UNK
  3. STOOL SOFTENER [Concomitant]
     Dosage: UNK
  4. SIMVASTATIN [Concomitant]
     Dosage: 1 MG, UNK
  5. PROLIA [Suspect]
     Indication: OSTEOPOROSIS POSTMENOPAUSAL
     Dosage: 60 MG, Q6MO
     Route: 058
     Dates: start: 20111101
  6. CALCIUM [Concomitant]
     Dosage: UNK

REACTIONS (4)
  - NASAL CONGESTION [None]
  - IMMUNODEFICIENCY [None]
  - RHINORRHOEA [None]
  - FATIGUE [None]
